FAERS Safety Report 5262863-X (Version None)
Quarter: 2007Q1

REPORT INFORMATION
  Report Type: 
  Country: None (occurrence: None)
  Receive Date: 20070312
  Receipt Date: 20070312
  Transmission Date: 20070707
  Serious: Yes (Other)
  Sender: FDA-Public Use
  Company Number: US-GLAXOSMITHKLINE-A0642554A

PATIENT
  Sex: Male

DRUGS (1)
  1. NICODERM CQ [Suspect]
     Dosage: 14MG UNKNOWN
     Route: 062
     Dates: start: 20030101

REACTIONS (1)
  - MYOCARDIAL INFARCTION [None]
